FAERS Safety Report 8161764-7 (Version None)
Quarter: 2012Q1

REPORT INFORMATION
  Report Type: 
  Country: None (occurrence: None)
  Receive Date: 20120224
  Receipt Date: 20110411
  Transmission Date: 20120608
  Serious: No
  Sender: FDA-Public Use
  Company Number: US-BRISTOL-MYERS SQUIBB COMPANY-15618556

PATIENT
  Age: 67 Year
  Sex: Male

DRUGS (2)
  1. METFORMIN HCL [Suspect]
     Indication: TYPE 2 DIABETES MELLITUS
     Dosage: STARTED 30 DAYS AGO;
     Dates: start: 20110201
  2. LANTUS [Suspect]
     Indication: TYPE 2 DIABETES MELLITUS
     Dosage: 1 DF= 100IU/ML,12UNITS IN MORNING,12 UNITS IN EVENING; STARTED 30 DAYS
     Route: 058
     Dates: start: 20110201

REACTIONS (1)
  - BLOOD GLUCOSE INCREASED [None]
